FAERS Safety Report 8182066-9 (Version None)
Quarter: 2012Q1

REPORT INFORMATION
  Report Type: 
  Country: None (occurrence: None)
  Receive Date: 20120302
  Receipt Date: 20120229
  Transmission Date: 20120608
  Serious: Yes (Hospitalization)
  Sender: FDA-Public Use
  Company Number: US-MERCK-1202USA00696

PATIENT
  Age: 63 Year
  Sex: Male
  Weight: 103 kg

DRUGS (25)
  1. NIACINAMIDE [Concomitant]
     Route: 065
  2. ZOFRAN [Concomitant]
     Route: 065
  3. CYANOCOBALAMIN [Concomitant]
     Route: 065
  4. PYRIDOXINE HYDROCHLORIDE [Concomitant]
     Route: 065
  5. ZYRTEC [Concomitant]
     Route: 065
  6. ZOMETA [Suspect]
     Indication: PROSTATE CANCER METASTATIC
     Route: 065
  7. ASCORBIC ACID [Concomitant]
     Route: 065
  8. PROVENGE [Suspect]
     Indication: PROSTATE CANCER METASTATIC
     Route: 042
     Dates: start: 20111024, end: 20111024
  9. CHOLECALCIFEROL [Concomitant]
     Route: 065
  10. ERGOCALCIFEROL [Concomitant]
     Route: 065
  11. FERROUS SULFATE [Concomitant]
     Route: 065
  12. CITRACAL + D [Concomitant]
     Route: 065
  13. ZOMETA [Suspect]
     Indication: METASTASES TO PROSTATE
     Route: 065
  14. VITAMIN A [Concomitant]
     Route: 065
  15. POLYETHYLENE GLYCOL [Concomitant]
     Route: 065
  16. CHOLECALCIFEROL [Concomitant]
     Route: 065
  17. REDISOL [Concomitant]
     Route: 065
  18. DECADRON [Suspect]
     Indication: MYELOPATHY
     Route: 048
  19. CASODEX [Concomitant]
     Route: 065
  20. RIBOFLAVIN [Concomitant]
     Route: 065
  21. PROVENGE [Suspect]
     Indication: PROSTATE CANCER
     Route: 042
     Dates: start: 20111024, end: 20111024
  22. VITAMINS (UNSPECIFIED) [Concomitant]
     Route: 065
  23. NEURONTIN [Concomitant]
     Route: 065
  24. MIRALAX [Concomitant]
     Route: 065
  25. THIAMINE HYDROCHLORIDE [Concomitant]
     Route: 065

REACTIONS (16)
  - ADVERSE EVENT [None]
  - ABASIA [None]
  - INTERVERTEBRAL DISC DISORDER [None]
  - CARDIOMEGALY [None]
  - SYSTEMIC SCLEROSIS [None]
  - PAIN [None]
  - ATELECTASIS [None]
  - BONE MARROW DISORDER [None]
  - MYELITIS TRANSVERSE [None]
  - DYSAESTHESIA [None]
  - HYPERGLYCAEMIA [None]
  - METASTATIC NEOPLASM [None]
  - DEFORMITY [None]
  - PLEURAL EFFUSION [None]
  - DISEASE PROGRESSION [None]
  - EXTRASYSTOLES [None]
